FAERS Safety Report 9594705 (Version 1)
Quarter: 2013Q4

REPORT INFORMATION
  Report Type: Spontaneous
  Country: US (occurrence: None)
  Receive Date: 20131002
  Receipt Date: 20131002
  Transmission Date: 20140711
  Serious: Yes (Other)
  Sender: FDA-Public Use
  Company Number: FK201304414

PATIENT
  Age: 47 Year
  Sex: Female

DRUGS (5)
  1. ONDANSETRON [Suspect]
     Indication: NAUSEA
  2. PROMETHAZINE [Suspect]
     Indication: NAUSEA
  3. METOCLOPRAMIDE [Suspect]
     Indication: NAUSEA
  4. CITALOPRAM [Suspect]
     Indication: PRODUCT USED FOR UNKNOWN INDICATION
  5. CLOZAPINE [Suspect]
     Indication: SCHIZOPHRENIA

REACTIONS (4)
  - Serotonin syndrome [None]
  - Drug interaction [None]
  - Unresponsive to stimuli [None]
  - Salivary hypersecretion [None]
